FAERS Safety Report 7519317-7 (Version None)
Quarter: 2011Q2

REPORT INFORMATION
  Report Type: 
  Country: None (occurrence: None)
  Receive Date: 20110523
  Receipt Date: 20110504
  Transmission Date: 20111010
  Serious: Yes (Other)
  Sender: FDA-Public Use
  Company Number: RB-24809-2011

PATIENT
  Age: 23 Year
  Sex: Female

DRUGS (2)
  1. ABILIFY [Concomitant]
  2. MUCINEX [Suspect]
     Indication: RESPIRATORY TRACT CONGESTION
     Dosage: (PATIENT TOOK 1 TABLET EVERY 12 HOURS ON 01-MAY-2011 AND ONE MORE TABLET ON 02-MAY-2011 ORAL)
     Route: 048

REACTIONS (8)
  - DIZZINESS [None]
  - VOMITING [None]
  - PALPITATIONS [None]
  - EPISTAXIS [None]
  - FEELING ABNORMAL [None]
  - MALAISE [None]
  - ANGINA PECTORIS [None]
  - CHEST PAIN [None]
